FAERS Safety Report 11288983 (Version 1)
Quarter: 2015Q3

REPORT INFORMATION
  Report Type: Spontaneous
  Country: US (occurrence: US)
  Receive Date: 20150721
  Receipt Date: 20150721
  Transmission Date: 20151125
  Serious: Yes (Other)
  Sender: FDA-Public Use
  Company Number: US-TEVA-579472USA

PATIENT
  Age: 57 Year
  Sex: Female

DRUGS (1)
  1. COPAXONE [Suspect]
     Active Substance: GLATIRAMER ACETATE
     Route: 065
     Dates: start: 20140812

REACTIONS (3)
  - Multiple sclerosis relapse [Unknown]
  - Blindness unilateral [Unknown]
  - Agitation [Unknown]

NARRATIVE: CASE EVENT DATE: 20150715
